FAERS Safety Report 11290958 (Version 1)
Quarter: 2015Q3

REPORT INFORMATION
  Report Type: Spontaneous
  Country: US (occurrence: None)
  Receive Date: 20150720
  Receipt Date: 20150720
  Transmission Date: 20151125
  Serious: No
  Sender: FDA-Public Use
  Company Number: None

PATIENT
  Sex: Female

DRUGS (3)
  1. CELEBREX [Concomitant]
     Active Substance: CELECOXIB
  2. FOSAMAX [Concomitant]
     Active Substance: ALENDRONATE SODIUM
  3. ENBREL [Suspect]
     Active Substance: ETANERCEPT
     Indication: RHEUMATOID ARTHRITIS
     Dosage: ENBREL 50 MG/ML  SQ ONCE WEEKLY  SQ
     Route: 058
     Dates: start: 20070531

REACTIONS (1)
  - Infection [None]
